FAERS Safety Report 16397271 (Version 1)
Quarter: 2019Q2

REPORT INFORMATION
  Report Type: Spontaneous
  Country: FR (occurrence: FR)
  Receive Date: 20190606
  Receipt Date: 20190606
  Transmission Date: 20190711
  Serious: Yes (Hospitalization)
  Sender: FDA-Public Use
  Company Number: FR-TEVA-2019-FR-1058842

PATIENT
  Age: 52 Year
  Sex: Male
  Weight: 76 kg

DRUGS (7)
  1. EMEND [Concomitant]
     Active Substance: APREPITANT
     Indication: ANTIEMETIC SUPPORTIVE CARE
     Dosage: 1 DOSAGE FORMS
     Route: 048
     Dates: start: 20190410, end: 20190410
  2. ZOPHREN 8 MG / 4 ML SOLUTION FOR INJECTION IN PRE-FILLED SYRINGE [Concomitant]
     Indication: ANTIEMETIC SUPPORTIVE CARE
     Dosage: 1 DOSAGE FORMS
     Route: 042
     Dates: start: 20190410, end: 20190410
  3. TAXOTERE [Suspect]
     Active Substance: DOCETAXEL
     Indication: GASTRIC CANCER
     Dosage: 100 MILLIGRAMS
     Route: 041
     Dates: start: 20190410, end: 20190410
  4. FLUOROURACILE PFIZER 50 MG / ML, CONCENTRATE FOR SOLUTION FOR INFUSION [Suspect]
     Active Substance: FLUOROURACIL
     Indication: GASTRIC CANCER
     Dosage: 3900 MILLIGRAM
     Route: 041
     Dates: start: 20190410, end: 20190410
  5. OXALIPLATIN TEVA 5 MG / ML, CONCENTRATE FOR SOLUTION FOR INFUSION [Suspect]
     Active Substance: OXALIPLATIN
     Indication: GASTRIC CANCER
     Dosage: 150 MILLIGRAM
     Route: 041
     Dates: start: 20190410, end: 20190410
  6. ELVORINE [Suspect]
     Active Substance: LEUCOVORIN CALCIUM
     Indication: GASTRIC CANCER
     Dosage: 195 MILLIGRAM
     Route: 041
     Dates: start: 20190410, end: 20190410
  7. SOLUMEDROL 40 MG / 2 ML, LYOPHILISATE AND SOLUTION FOR PARENTERAL USE [Concomitant]
     Indication: ANTIEMETIC SUPPORTIVE CARE
     Dosage: 80 MILLIGRAM
     Route: 042
     Dates: start: 20190410, end: 20190410

REACTIONS (3)
  - Hepatocellular injury [Recovered/Resolved]
  - Pyrexia [Recovered/Resolved]
  - Diarrhoea [Recovered/Resolved]

NARRATIVE: CASE EVENT DATE: 20190410
